FAERS Safety Report 9747422 (Version 1)
Quarter: 2013Q4

REPORT INFORMATION
  Report Type: Spontaneous
  Country: US (occurrence: US)
  Receive Date: 20131212
  Receipt Date: 20131212
  Transmission Date: 20140711
  Serious: No
  Sender: FDA-Public Use
  Company Number: US-BIOGENIDEC-2013BI117325

PATIENT
  Sex: Female

DRUGS (2)
  1. TYSABRI [Suspect]
     Indication: MULTIPLE SCLEROSIS
     Route: 042
     Dates: start: 20110822, end: 20111004
  2. TECFIDERA [Concomitant]
     Indication: MULTIPLE SCLEROSIS

REACTIONS (2)
  - Fall [Recovered/Resolved]
  - Blood pressure decreased [Not Recovered/Not Resolved]
